FAERS Safety Report 5278904-X (Version None)
Quarter: 2007Q1

REPORT INFORMATION
  Report Type: 
  Country: None (occurrence: None)
  Receive Date: 20061208
  Receipt Date: 20050927
  Transmission Date: 20070707
  Serious: No
  Sender: FDA-Public Use
  Company Number: 2005UW13330

PATIENT
  Age: 53 Year
  Sex: Male
  Weight: 83.0083 kg

DRUGS (14)
  1. CRESTOR [Suspect]
     Indication: HYPERLIPIDAEMIA
     Dosage: 10 MG QD PO
     Route: 048
     Dates: start: 20040910, end: 20041005
  2. COUMADIN [Suspect]
     Dosage: 6 MG QD
  3. COUMADIN [Suspect]
     Dosage: 7.5 MG QD
     Dates: start: 20040910, end: 20040928
  4. COUMADIN [Suspect]
     Dosage: 5 MG
     Dates: start: 20040901, end: 20041005
  5. COUMADIN [Suspect]
     Dosage: MG MONDAY/THURSDAY AND 5 MG ALL OTHER DAYS
     Dates: start: 20041015
  6. KLOR-CON [Concomitant]
  7. COREG [Concomitant]
  8. BUMETANIDE [Concomitant]
  9. DIGOXIN [Concomitant]
  10. AMIODARONE HCL [Concomitant]
  11. DIOVAN [Concomitant]
  12. FOLIC ACID [Concomitant]
  13. ASPIRIN [Concomitant]
  14. METHOTREXATE [Concomitant]

REACTIONS (1)
  - INTERNATIONAL NORMALISED RATIO INCREASED [None]
